FAERS Safety Report 13842690 (Version 1)
Quarter: 2017Q3

REPORT INFORMATION
  Report Type: Spontaneous
  Country: IN (occurrence: IN)
  Receive Date: 20170808
  Receipt Date: 20170808
  Transmission Date: 20171127
  Serious: No
  Sender: FDA-Public Use
  Company Number: IN-LUPIN PHARMACEUTICALS INC.-2017-03003

PATIENT
  Age: 27 Year
  Sex: Female

DRUGS (4)
  1. P-ZIDE [Suspect]
     Active Substance: PYRAZINAMIDE
     Indication: TUBERCULOSIS
     Dosage: 1 DF, BID
     Route: 048
     Dates: start: 20170607, end: 20170608
  2. ETHAMBUTOL HYDROCHLORIDE. [Suspect]
     Active Substance: ETHAMBUTOL HYDROCHLORIDE
     Indication: TUBERCULOSIS
     Dosage: 1 DF, QD
     Route: 048
     Dates: start: 20170607, end: 20170608
  3. METHIMEZ [Concomitant]
     Indication: HYPOTHYROIDISM
     Dosage: UNK, OD
     Route: 048
     Dates: start: 2016
  4. R-CINEX [Concomitant]
     Active Substance: ISONIAZID\RIFAMPIN
     Indication: TUBERCULOSIS
     Dosage: EMPTY STOMACH, OD
     Route: 065
     Dates: start: 20170607, end: 20170608

REACTIONS (1)
  - Hypersensitivity [Recovered/Resolved]

NARRATIVE: CASE EVENT DATE: 20170607
